FAERS Safety Report 5734894-4 (Version None)
Quarter: 2008Q2

REPORT INFORMATION
  Report Type: 
  Country: None (occurrence: None)
  Receive Date: 20080512
  Receipt Date: 20080506
  Transmission Date: 20081010
  Serious: Yes (Hospitalization)
  Sender: FDA-Public Use
  Company Number: B0519269A

PATIENT
  Age: 69 Year
  Sex: Female

DRUGS (6)
  1. SERETIDE [Suspect]
     Indication: ASTHMA
     Route: 055
     Dates: end: 20080214
  2. TAXOTERE [Suspect]
     Dosage: 100MG PER DAY
     Route: 042
     Dates: start: 20080129, end: 20080129
  3. SOLUPRED [Suspect]
     Dosage: 40MG PER DAY
     Route: 048
     Dates: start: 20080129, end: 20080214
  4. NEXIUM [Suspect]
     Dosage: 20MG PER DAY
     Route: 048
     Dates: start: 20080129, end: 20080214
  5. DIANTALVIC [Suspect]
     Indication: PAIN
     Route: 065
     Dates: end: 20080214
  6. DURAGESIC-100 [Suspect]
     Indication: PAIN
     Route: 065
     Dates: end: 20080214

REACTIONS (11)
  - ACUTE RESPIRATORY FAILURE [None]
  - ALVEOLITIS [None]
  - BRONCHIAL OBSTRUCTION [None]
  - HYPOXIA [None]
  - LUNG DISORDER [None]
  - PAIN [None]
  - PAINFUL RESPIRATION [None]
  - PHLEBITIS [None]
  - PLEURAL EFFUSION [None]
  - PULMONARY EMBOLISM [None]
  - RESPIRATORY DISTRESS [None]
